FAERS Safety Report 25211400 (Version 4)
Quarter: 2025Q2

REPORT INFORMATION
  Report Type: Report from Study
  Country: US (occurrence: US)
  Receive Date: 20250417
  Receipt Date: 20250602
  Transmission Date: 20250717
  Serious: Yes (Other)
  Sender: UCB
  Company Number: US-UCBSA-2025022602

PATIENT
  Age: 27 Year
  Sex: Female
  Weight: 81.64 kg

DRUGS (8)
  1. FINTEPLA [Suspect]
     Active Substance: FENFLURAMINE
     Indication: Lennox-Gastaut syndrome
     Dosage: 6 MILLILITER, 2X/DAY (BID)
     Route: 048
     Dates: start: 202410
  2. FINTEPLA [Suspect]
     Active Substance: FENFLURAMINE
     Route: 048
     Dates: start: 20240930
  3. FINTEPLA [Suspect]
     Active Substance: FENFLURAMINE
     Route: 048
  4. CARBAMAZEPINE [Concomitant]
     Active Substance: CARBAMAZEPINE
     Indication: Product used for unknown indication
     Dosage: 600 MILLIGRAM, 2X/DAY (BID)
     Route: 048
  5. EPIDIOLEX [Concomitant]
     Active Substance: CANNABIDIOL
     Indication: Product used for unknown indication
     Dosage: 5 MILLILITER, 2X/DAY (BID)
     Route: 048
  6. SABRIL [Concomitant]
     Active Substance: VIGABATRIN
     Indication: Product used for unknown indication
     Dosage: 1500 MILLIGRAM, 2X/DAY (BID)
  7. CARBIDOL [Concomitant]
     Indication: Epilepsy
  8. VIGABATRIN [Concomitant]
     Active Substance: VIGABATRIN
     Indication: Product used for unknown indication

REACTIONS (2)
  - Mitral valve incompetence [Not Recovered/Not Resolved]
  - Aortic valve incompetence [Not Recovered/Not Resolved]

NARRATIVE: CASE EVENT DATE: 20250313
